FAERS Safety Report 4648597-0 (Version None)
Quarter: 2005Q2

REPORT INFORMATION
  Report Type: 
  Country: None (occurrence: None)
  Receive Date: 20050429
  Receipt Date: 20050419
  Transmission Date: 20051028
  Serious: Yes (Hospitalization)
  Sender: FDA-Public Use
  Company Number: 200511389FR

PATIENT
  Age: 45 Year
  Sex: 0

DRUGS (1)
  1. RIFAMPIN AND ISONIAZID [Suspect]

REACTIONS (1)
  - HAEMOLYTIC URAEMIC SYNDROME [None]
